FAERS Safety Report 5424521-8 (Version None)
Quarter: 2007Q3

REPORT INFORMATION
  Report Type: 
  Country: None (occurrence: None)
  Receive Date: 20070727
  Receipt Date: 20070419
  Transmission Date: 20080115
  Serious: No
  Sender: FDA-Public Use
  Company Number: 262974

PATIENT
  Age: 49 Year
  Sex: Male

DRUGS (4)
  1. LEVEMIR [Suspect]
     Indication: INSULIN-REQUIRING TYPE II DIABETES MELLITUS
     Dosage: 20 IU, QD, SUBCUTANEOUS
     Route: 058
     Dates: start: 20061101, end: 20070420
  2. LIPITOR (ATROVASTATIN CALCIUM) TABLET, 40 MG [Concomitant]
  3. COZAAR [Concomitant]
  4. PREVACID [Concomitant]

REACTIONS (3)
  - BLOOD GLUCOSE INCREASED [None]
  - INJECTION SITE PRURITUS [None]
  - OEDEMA PERIPHERAL [None]
